FAERS Safety Report 7344845-7 (Version None)
Quarter: 2011Q1

REPORT INFORMATION
  Report Type: 
  Country: None (occurrence: None)
  Receive Date: 20110310
  Receipt Date: 20110309
  Transmission Date: 20110831
  Serious: Yes (Death)
  Sender: FDA-Public Use
  Company Number: VE-PFIZER INC-2011051442

PATIENT
  Age: 90 Year
  Sex: Male

DRUGS (2)
  1. NORVASC [Suspect]
     Indication: HYPERTENSION
     Dosage: 5 MG, 1X/DAY
     Route: 048
     Dates: start: 19950101, end: 20110123
  2. BI-EUGLUCON M [Concomitant]
     Indication: DIABETES MELLITUS
     Dosage: 500/5 MG, 1X/DAY
     Route: 048
     Dates: start: 20060101

REACTIONS (1)
  - RESPIRATORY ARREST [None]
